FAERS Safety Report 5174436-8 (Version None)
Quarter: 2006Q4

REPORT INFORMATION
  Report Type: 
  Country: None (occurrence: None)
  Receive Date: 20061206
  Receipt Date: 20061123
  Transmission Date: 20070319
  Serious: No
  Sender: FDA-Public Use
  Company Number: 2006-150876-NL

PATIENT
  Age: 38 Year
  Sex: Female

DRUGS (2)
  1. ETONOGESTREL [Suspect]
     Indication: CONTRACEPTION
     Dosage: DF  SUBCUTANEOUS
     Route: 058
     Dates: start: 20040405, end: 20060815
  2. MEBENDAZOLE [Concomitant]

REACTIONS (1)
  - BREAST CANCER FEMALE [None]
